FAERS Safety Report 7553433-9 (Version None)
Quarter: 2011Q2

REPORT INFORMATION
  Report Type: 
  Country: None (occurrence: None)
  Receive Date: 20110609
  Receipt Date: 20110525
  Transmission Date: 20111010
  Serious: Yes (Hospitalization)
  Sender: FDA-Public Use
  Company Number: FK201101081

PATIENT
  Sex: Female

DRUGS (10)
  1. FUROSEMIDE [Suspect]
     Indication: OEDEMA
     Dosage: INTRAVNEOUS
     Route: 042
  2. ACETAMINOPHEN [Suspect]
     Indication: PRODUCT USED FOR UNKNOWN INDICATION
     Dosage: INTRAVENOUS
     Route: 042
  3. PHOSPHATE ION [Suspect]
     Indication: BLOOD PHOSPHORUS DECREASED
     Dosage: INTRAVENOUS
     Route: 042
  4. PROPOFOL [Suspect]
     Indication: PRODUCT USED FOR UNKNOWN INDICATION
     Dosage: INTRAVENOUS
     Route: 042
  5. CLONIDINE [Suspect]
     Indication: HYPERTENSION
  6. MEROPENEM [Suspect]
     Indication: PRODUCT USED FOR UNKNOWN INDICATION
     Dosage: INTRAVENOUS
     Route: 042
  7. NOREPINEPHRINE BITARTRATE [Suspect]
     Indication: PRODUCT USED FOR UNKNOWN INDICATION
     Dosage: INTRAVENOUS
     Route: 042
  8. TPN [Suspect]
     Indication: PRODUCT USED FOR UNKNOWN INDICATION
  9. VANCOMYCIN [Suspect]
     Indication: ANTIBIOTIC THERAPY
     Dosage: INTRAVNEOUS
     Route: 042
  10. PHENTOLAMINE MESYLATE [Suspect]
     Indication: PRODUCT USED FOR UNKNOWN INDICATION
     Dosage: INTRAVENOUS
     Route: 042

REACTIONS (4)
  - OEDEMA [None]
  - DEVICE RELATED SEPSIS [None]
  - ABDOMINAL SEPSIS [None]
  - HYPERTENSION [None]
